FAERS Safety Report 4644315-0 (Version None)
Quarter: 2005Q2

REPORT INFORMATION
  Report Type: 
  Country: None (occurrence: None)
  Receive Date: 20050422
  Receipt Date: 20050411
  Transmission Date: 20051028
  Serious: Yes (Other)
  Sender: FDA-Public Use
  Company Number: 2005058049

PATIENT
  Age: 65 Year
  Sex: Male

DRUGS (2)
  1. BEXTRA [Suspect]
     Indication: SHOULDER OPERATION
     Dosage: ORAL
     Route: 048
     Dates: start: 20041124
  2. MULTIVITAMINS (ASCORBIC ACID, ERGOCALCIFEROL, FOLIC ACID, NICOTINAMIDE [Concomitant]

REACTIONS (4)
  - DRUG EFFECT DECREASED [None]
  - HERPES ZOSTER [None]
  - INFLAMMATION [None]
  - RASH [None]
